FAERS Safety Report 23564235 (Version 2)
Quarter: 2024Q1

REPORT INFORMATION
  Report Type: Spontaneous
  Country: US (occurrence: None)
  Receive Date: 20240226
  Receipt Date: 20240325
  Transmission Date: 20240409
  Serious: No
  Sender: FDA-Public Use
  Company Number: 2024A042076

PATIENT
  Sex: Male

DRUGS (1)
  1. BYDUREON BCISE [Suspect]
     Active Substance: EXENATIDE
     Indication: Diabetes mellitus

REACTIONS (3)
  - Injury associated with device [Unknown]
  - Wrong technique in device usage process [Unknown]
  - Device leakage [Unknown]
